FAERS Safety Report 12820409 (Version 2)
Quarter: 2016Q4

REPORT INFORMATION
  Report Type: Report from Study
  Country: US (occurrence: US)
  Receive Date: 20161006
  Receipt Date: 20161028
  Transmission Date: 20170207
  Serious: No
  Sender: FDA-Public Use
  Company Number: PHEH2016US025738

PATIENT
  Age: 15 Year
  Sex: Female
  Weight: 115 kg

DRUGS (3)
  1. ILARIS [Suspect]
     Active Substance: CANAKINUMAB
     Indication: JUVENILE IDIOPATHIC ARTHRITIS
     Dosage: 216 OT, QMO
     Route: 058
     Dates: start: 201407
  2. ILARIS [Suspect]
     Active Substance: CANAKINUMAB
     Dosage: 150 MG, UNK
     Route: 065
     Dates: start: 20160920
  3. ILARIS [Suspect]
     Active Substance: CANAKINUMAB
     Dosage: 66 MG, UNK
     Route: 065
     Dates: start: 20160930

REACTIONS (2)
  - Drug dispensing error [Unknown]
  - Incorrect dose administered [Recovered/Resolved]

NARRATIVE: CASE EVENT DATE: 20160930
